FAERS Safety Report 15742540 (Version 2)
Quarter: 2019Q1

REPORT INFORMATION
  Report Type: Spontaneous
  Country: US (occurrence: US)
  Receive Date: 20181219
  Receipt Date: 20190309
  Transmission Date: 20190417
  Serious: Yes (Other)
  Sender: FDA-Public Use
  Company Number: PHEH2018US053720

PATIENT
  Age: 52 Year
  Sex: Male

DRUGS (1)
  1. TASIGNA [Suspect]
     Active Substance: NILOTINIB
     Indication: CHRONIC MYELOID LEUKAEMIA
     Dosage: 300 MG, BID
     Route: 048
     Dates: start: 201401, end: 201805

REACTIONS (31)
  - Barrett^s oesophagus [Unknown]
  - Abdominal pain upper [Unknown]
  - Intervertebral disc degeneration [Unknown]
  - Musculoskeletal pain [Unknown]
  - Flank pain [Unknown]
  - Cough [Unknown]
  - Depression [Unknown]
  - Kidney infection [Unknown]
  - Thrombosis [Unknown]
  - Spleen disorder [Unknown]
  - Abdominal pain [Unknown]
  - Arthralgia [Unknown]
  - Headache [Unknown]
  - Muscle spasms [Unknown]
  - Rash [Unknown]
  - Pulmonary valve incompetence [Unknown]
  - Hepatic steatosis [Unknown]
  - Diarrhoea [Unknown]
  - Hypertension [Unknown]
  - Discomfort [Unknown]
  - Somnolence [Unknown]
  - Pyrexia [Unknown]
  - Back pain [Unknown]
  - Renal pain [Unknown]
  - Bone pain [Unknown]
  - Stomatitis [Unknown]
  - Constipation [Unknown]
  - Pain [Unknown]
  - Gastric polyps [Unknown]
  - Pharyngitis [Unknown]
  - Insomnia [Unknown]

NARRATIVE: CASE EVENT DATE: 201804
